FAERS Safety Report 18376436 (Version 1)
Quarter: 2020Q4

REPORT INFORMATION
  Report Type: Spontaneous
  Country: US (occurrence: US)
  Receive Date: 20201012
  Receipt Date: 20201012
  Transmission Date: 20210114
  Serious: Yes (Death)
  Sender: FDA-Public Use
  Company Number: None

PATIENT
  Age: 64 Year
  Sex: Male

DRUGS (1)
  1. VELTASSA [Suspect]
     Active Substance: PATIROMER
     Indication: HYPERKALAEMIA
     Dosage: ?          OTHER FREQUENCY:EVERY 48 HOURS;?
     Route: 048
     Dates: start: 20190411, end: 20201011

REACTIONS (1)
  - Death [None]

NARRATIVE: CASE EVENT DATE: 20201012
